FAERS Safety Report 24135122 (Version 2)
Quarter: 2024Q3

REPORT INFORMATION
  Report Type: Spontaneous
  Country: US (occurrence: US)
  Receive Date: 20240725
  Receipt Date: 20240725
  Transmission Date: 20241017
  Serious: Yes (Other)
  Sender: ROCHE
  Company Number: US-ROCHE-10000027152

PATIENT
  Age: 51 Year
  Sex: Male

DRUGS (5)
  1. RITUXIMAB [Suspect]
     Active Substance: RITUXIMAB
     Indication: Immune-mediated optic neuritis
     Route: 065
  2. AZATHIOPRINE [Suspect]
     Active Substance: AZATHIOPRINE
     Indication: Crohn^s disease
     Route: 065
  3. USTEKINUMAB [Concomitant]
     Active Substance: USTEKINUMAB
     Indication: Crohn^s disease
     Route: 058
  4. USTEKINUMAB [Concomitant]
     Active Substance: USTEKINUMAB
     Route: 042
  5. USTEKINUMAB [Concomitant]
     Active Substance: USTEKINUMAB
     Route: 058

REACTIONS (2)
  - Crohn^s disease [Unknown]
  - Perirectal abscess [Recovered/Resolved]
